FAERS Safety Report 10064334 (Version 1)
Quarter: 2014Q2

REPORT INFORMATION
  Report Type: Spontaneous
  Country: US (occurrence: US)
  Receive Date: 20140408
  Receipt Date: 20140408
  Transmission Date: 20141212
  Serious: Yes (Other)
  Sender: FDA-Public Use
  Company Number: US-BAYER-2014-048082

PATIENT
  Age: 27 Year
  Sex: Female
  Weight: 86.17 kg

DRUGS (6)
  1. YAZ [Suspect]
  2. ASPIRIN [Concomitant]
  3. CLOPIDOGREL [Concomitant]
  4. MECLIZINE [Concomitant]
  5. NIACIN [Concomitant]
  6. MULTIVITAMIN [Concomitant]

REACTIONS (2)
  - Cerebrovascular accident [None]
  - Cerebral infarction [None]
